FAERS Safety Report 14522702 (Version 2)
Quarter: 2018Q1

REPORT INFORMATION
  Report Type: Spontaneous
  Country: US (occurrence: US)
  Receive Date: 20180212
  Receipt Date: 20180316
  Transmission Date: 20180509
  Serious: No
  Sender: FDA-Public Use
  Company Number: US-VIFOR (INTERNATIONAL) INC.-VIT-2018-00718

PATIENT
  Sex: Female
  Weight: 68.1 kg

DRUGS (12)
  1. RENVELA [Concomitant]
     Active Substance: SEVELAMER CARBONATE
  2. VELTASSA [Suspect]
     Active Substance: PATIROMER
     Indication: HYPERKALAEMIA
     Route: 048
     Dates: start: 20160617
  3. COUMADIN [Concomitant]
     Active Substance: WARFARIN SODIUM
  4. FAMOTIDINE. [Concomitant]
     Active Substance: FAMOTIDINE
  5. LANTUS [Concomitant]
     Active Substance: INSULIN GLARGINE
  6. LIPITOR [Concomitant]
     Active Substance: ATORVASTATIN CALCIUM
  7. NEPHROCAPS [Concomitant]
     Active Substance: ASCORBIC ACID\BIOTIN\CYANOCOBALAMIN\FOLIC ACID\NIACIN\PANTOTHENIC ACID\PYRIDOXINE\RIBOFLAVIN\THIAMINE
  8. TACROLIMUS. [Concomitant]
     Active Substance: TACROLIMUS
  9. MIDODRINE HYDROCHLORIDE. [Concomitant]
     Active Substance: MIDODRINE HYDROCHLORIDE
  10. NOVOLOG [Concomitant]
     Active Substance: INSULIN ASPART
  11. PREDNISONE. [Concomitant]
     Active Substance: PREDNISONE
  12. SODIUM BICARBONATE. [Concomitant]
     Active Substance: SODIUM BICARBONATE

REACTIONS (4)
  - Decreased appetite [Unknown]
  - Dehydration [Not Recovered/Not Resolved]
  - Unevaluable event [Unknown]
  - Product quality issue [Not Recovered/Not Resolved]
